FAERS Safety Report 6150587-6 (Version None)
Quarter: 2009Q2

REPORT INFORMATION
  Report Type: 
  Country: None (occurrence: None)
  Receive Date: 20090407
  Receipt Date: 20090407
  Transmission Date: 20091009
  Serious: Yes (Life-Threatening)
  Sender: FDA-Public Use
  Company Number: None

PATIENT
  Sex: Female
  Weight: 54.4316 kg

DRUGS (2)
  1. LAMOTRIGINE [Suspect]
     Indication: EPILEPSY
     Dosage: 150 MG. IN AM, 200 MG IN PM BID PO (DURATION: WEEKS)
     Route: 048
  2. LAMOTRIGINE [Suspect]
     Indication: NEUROFIBROMATOSIS
     Dosage: 150 MG. IN AM, 200 MG IN PM BID PO (DURATION: WEEKS)
     Route: 048

REACTIONS (2)
  - CONVULSION [None]
  - THERAPEUTIC RESPONSE UNEXPECTED WITH DRUG SUBSTITUTION [None]
